FAERS Safety Report 11766857 (Version 1)
Quarter: 2015Q4

REPORT INFORMATION
  Report Type: Report from Study
  Country: US (occurrence: US)
  Receive Date: 20151123
  Receipt Date: 20151123
  Transmission Date: 20160304
  Serious: No
  Sender: FDA-Public Use
  Company Number: US-AMGEN-USASL2015120450

PATIENT
  Age: 33 Year
  Sex: Female

DRUGS (1)
  1. ENBREL [Suspect]
     Active Substance: ETANERCEPT
     Indication: ANKYLOSING SPONDYLITIS
     Dosage: 50 MG, QWK
     Route: 065
     Dates: start: 201505

REACTIONS (8)
  - Malaise [Unknown]
  - Nausea [Unknown]
  - Hyperhidrosis [Unknown]
  - Headache [Unknown]
  - Chills [Unknown]
  - Migraine [Recovering/Resolving]
  - Tinnitus [Unknown]
  - Dizziness [Unknown]

NARRATIVE: CASE EVENT DATE: 2015
